FAERS Safety Report 25104867 (Version 1)
Quarter: 2025Q1

REPORT INFORMATION
  Report Type: Spontaneous
  Country: US (occurrence: US)
  Receive Date: 20250321
  Receipt Date: 20250321
  Transmission Date: 20250408
  Serious: Yes (Other)
  Sender: ROCHE
  Company Number: US-ROCHE-10000230225

PATIENT
  Sex: Female

DRUGS (15)
  1. ACTEMRA ACTPEN [Suspect]
     Active Substance: TOCILIZUMAB
     Indication: Rheumatoid arthritis
     Dosage: FORM STRENGTH: 162 MG/0.9 ML
     Route: 058
     Dates: start: 20240105
  2. ALBUTEROL SU AER 108 (90) [Concomitant]
  3. ARIMIDEX [Concomitant]
     Active Substance: ANASTROZOLE
  4. ATORVASTATIN TAB 80MG [Concomitant]
  5. CYMBALTA CPE 30MG [Concomitant]
  6. FOLIC ACID TAB 1MG [Concomitant]
  7. HYDROXYCHLOR TAB 400MG [Concomitant]
  8. LEVOTHYROXIN TAB 25MCG [Concomitant]
  9. LISINOPRIL TAB 40MG [Concomitant]
  10. METFORMIN HC TB2 500MG: [Concomitant]
  11. METHOTREXATE SOL 1GM/40ML [Concomitant]
  12. METHYLPREDNI TBP 4MG [Concomitant]
  13. OMEPRAZOLE CPD 40MG [Concomitant]
  14. STIOLTO RESP AER 2.5-2.5M [Concomitant]
  15. SULFASALAZIN TAB 500MG [Concomitant]

REACTIONS (1)
  - Bladder neoplasm [Recovered/Resolved]
